FAERS Safety Report 21354269 (Version 1)
Quarter: 2022Q3

REPORT INFORMATION
  Report Type: Spontaneous
  Country: KR (occurrence: KR)
  Receive Date: 20220920
  Receipt Date: 20220920
  Transmission Date: 20221026
  Serious: Yes (Other)
  Sender: FDA-Public Use
  Company Number: KR-PFIZER INC-PV202200059456

PATIENT
  Age: 9 Year
  Sex: Female

DRUGS (5)
  1. SOMATROPIN [Suspect]
     Active Substance: SOMATROPIN
     Indication: Turner^s syndrome
     Dosage: 0.20 MG/KG, WEEKLY (AT 6 YEARS 4 MONTHS)
  2. SOMATROPIN [Suspect]
     Active Substance: SOMATROPIN
     Dosage: 0.20 MG/KG, WEEKLY  (7 YEARS)
  3. SOMATROPIN [Suspect]
     Active Substance: SOMATROPIN
     Dosage: 0.28 MG/KG, WEEKLY (AT 8 YEARS)
     Route: 058
  4. SOMATROPIN [Suspect]
     Active Substance: SOMATROPIN
     Dosage: 0.30 MG/KG, WEEKLY  (AT 9 YEARS)
  5. SOMATROPIN [Suspect]
     Active Substance: SOMATROPIN
     Dosage: 0.32 MG/KG, WEEKLY (AT 9 YEARS 8 MONTHS)

REACTIONS (1)
  - Fibroma [Recovered/Resolved]
